FAERS Safety Report 10581691 (Version 2)
Quarter: 2015Q1

REPORT INFORMATION
  Report Type: Report from Study
  Country: JP (occurrence: JP)
  Receive Date: 20141113
  Receipt Date: 20150309
  Transmission Date: 20150720
  Serious: Yes (Death)
  Sender: FDA-Public Use
  Company Number: JP-MYLANLABS-2014M1009929

PATIENT

DRUGS (6)
  1. PACLITAXEL. [Suspect]
     Active Substance: PACLITAXEL
     Indication: CERVIX CARCINOMA STAGE IV
     Dosage: CUMULATIVE DOSE DURING TREATMENT: 2400 MG/BODY
     Route: 065
  2. CISPLATIN. [Suspect]
     Active Substance: CISPLATIN
     Indication: CERVIX CARCINOMA STAGE IV
     Dosage: CUMULATIVE DOSE DURING TREATMENT: 963 MG/BODY
     Route: 065
  3. CAMPTOTHECIN [Suspect]
     Active Substance: CAMPTOTHECIN
     Indication: CERVIX CARCINOMA STAGE IV
     Route: 065
  4. CARBOPLATIN INJECTION 50 MG ^NK^ [Suspect]
     Active Substance: CARBOPLATIN
     Indication: CERVIX CARCINOMA STAGE IV
     Dosage: CUMULATIVE DOSE DURING TREATMENT: 5900 MG/BODY
     Route: 065
  5. CARBOPLATIN INJECTION 50 MG ^NK^ [Suspect]
     Active Substance: CARBOPLATIN
     Indication: OFF LABEL USE
  6. IRINOTECAN [Suspect]
     Active Substance: IRINOTECAN
     Indication: CERVIX CARCINOMA STAGE IV

REACTIONS (1)
  - Acute myeloid leukaemia [Fatal]
